FAERS Safety Report 8287299-9 (Version None)
Quarter: 2012Q2

REPORT INFORMATION
  Report Type: 
  Country: None (occurrence: None)
  Receive Date: 20120416
  Receipt Date: 20120416
  Transmission Date: 20120825
  Serious: No
  Sender: FDA-Public Use
  Company Number: None

PATIENT
  Age: 62 Year
  Sex: Male
  Weight: 97.522 kg

DRUGS (1)
  1. FINASTERIDE [Suspect]
     Indication: PROSTATOMEGALY
     Route: 048
     Dates: start: 20070711, end: 20120413

REACTIONS (3)
  - LIBIDO DECREASED [None]
  - ERECTILE DYSFUNCTION [None]
  - EJACULATION DISORDER [None]
